FAERS Safety Report 22816991 (Version 11)
Quarter: 2023Q4

REPORT INFORMATION
  Report Type: Report from Study
  Country: CN (occurrence: CN)
  Receive Date: 20230812
  Receipt Date: 20231019
  Transmission Date: 20240110
  Serious: Yes (Death, Life-Threatening, Hospitalization, Other)
  Sender: FDA-Public Use
  Company Number: CN-AMGEN-CHNCT2023141959

PATIENT
  Age: 61 Year
  Sex: Female

DRUGS (36)
  1. CARFILZOMIB [Suspect]
     Active Substance: CARFILZOMIB
     Indication: Plasma cell myeloma
     Dosage: 35 MILLIGRAM, PER CHEMO REGIM
     Route: 042
     Dates: start: 20230728
  2. CARFILZOMIB [Suspect]
     Active Substance: CARFILZOMIB
     Dosage: 97.9 MILLIGRAM, PER CHEMO REGIM
     Route: 042
     Dates: start: 20230804
  3. DEXAMETHASONE [Suspect]
     Active Substance: DEXAMETHASONE
     Indication: Plasma cell myeloma
     Dosage: 40 MILLIGRAM, PER CHEMO REGIM
     Route: 042
     Dates: start: 20230728
  4. MEZIGDOMIDE [Suspect]
     Active Substance: MEZIGDOMIDE
     Indication: Plasma cell myeloma
     Dosage: 1 MILLIGRAM, PER CHEMO REGIM
     Route: 048
     Dates: start: 20230728
  5. FILGRASTIM [Concomitant]
     Active Substance: FILGRASTIM
     Indication: White blood cell count decreased
     Dosage: 150 MICROGRAM, ^ONCE^
     Route: 058
     Dates: start: 20230731, end: 20230731
  6. ENALAPRIL MALEATE [Concomitant]
     Active Substance: ENALAPRIL MALEATE
     Indication: Hypertension
     Dosage: 10 MILLIGRAM, QD
     Route: 049
     Dates: start: 2014
  7. UNSPECIFIED INGREDIENT [Concomitant]
     Active Substance: UNSPECIFIED INGREDIENT
     Indication: Prophylaxis
     Dosage: 5000 INTERNATIONAL UNIT
     Dates: start: 20230726, end: 20230803
  8. LEVAMLODIPINE BESYLATE [Concomitant]
     Active Substance: LEVAMLODIPINE BESYLATE
     Indication: Hypertension
     Dosage: 2.5 MILLIGRAM, QD
     Route: 049
     Dates: start: 2014
  9. INDOMETHACIN [Concomitant]
     Active Substance: INDOMETHACIN
     Indication: Product used for unknown indication
     Dosage: 0.1 GRAM, QD
     Dates: start: 20230805, end: 20230805
  10. MEROPENEM [Concomitant]
     Active Substance: MEROPENEM
     Indication: Urinary tract infection
     Dosage: 1 GRAM, TID
     Route: 042
     Dates: start: 20230720, end: 20230805
  11. THROMBOPOIETIN [Concomitant]
     Active Substance: THROMBOPOIETIN
     Indication: Platelet count decreased
     Dosage: 15000-3000 INTERNATIONAL UNIT, QD
     Route: 058
     Dates: start: 20230725, end: 20230816
  12. THROMBOPOIETIN [Concomitant]
     Active Substance: THROMBOPOIETIN
     Indication: Prophylaxis
  13. SODIUM BICARBONATE [Concomitant]
     Active Substance: SODIUM BICARBONATE
     Indication: Product used for unknown indication
     Dosage: 5 MILLIGRAM, ^ONCE^
     Route: 042
     Dates: start: 20230728, end: 20230808
  14. RANITIDINE HYDROCHLORIDE [Concomitant]
     Active Substance: RANITIDINE HYDROCHLORIDE
     Indication: Prophylaxis
     Dosage: 50 MILLIGRAM,  ^1 SLICE FORM OF ADMIN: CATAPLASMS.^
     Route: 042
     Dates: start: 20230715, end: 20230805
  15. Compound amino acid injection (14aa) [Concomitant]
     Indication: Product used for unknown indication
     Dosage: 250 MILLILITER
     Route: 042
     Dates: start: 20230719, end: 20230806
  16. GLYCERIN\LECITHIN\MEDIUM-CHAIN TRIGLYCERIDES\SOYBEAN OIL [Concomitant]
     Active Substance: GLYCERIN\LECITHIN\MEDIUM-CHAIN TRIGLYCERIDES\SOYBEAN OIL
     Indication: Product used for unknown indication
     Dosage: 250 MILLILITER
     Route: 042
     Dates: start: 20230719, end: 20230731
  17. FUROSEMIDE [Concomitant]
     Active Substance: FUROSEMIDE
     Indication: Product used for unknown indication
     Dosage: 20 MILLIGRAM, QD
     Route: 042
     Dates: start: 20230722, end: 20230808
  18. FUROSEMIDE [Concomitant]
     Active Substance: FUROSEMIDE
     Indication: Prophylaxis
  19. Oral rehydration salt iii [Concomitant]
     Indication: Prophylaxis
     Dosage: 5.12 GRAM, TID
     Dates: start: 20230724, end: 20230806
  20. FRUCTOSE DIPHOSPHATE SODIUM [Concomitant]
     Indication: Prophylaxis
     Dosage: 5 GRAM, QD
     Dates: start: 20230725, end: 20230731
  21. ACYCLOVIR [Concomitant]
     Active Substance: ACYCLOVIR
     Indication: Prophylaxis
     Dosage: 0.3 GRAM, QID, 0.3 GRAM, TID AND 0.3 GRAM, BID
     Route: 049
     Dates: start: 20230726, end: 20230807
  22. CALCIUM CARBONATE\CHOLECALCIFEROL [Concomitant]
     Active Substance: CALCIUM CARBONATE\CHOLECALCIFEROL
     Indication: Electrolyte imbalance
     Dosage: 1 SLICE AND 1 SLICE, ^ONCE^
     Route: 049
     Dates: start: 20230731, end: 20230806
  23. METHYLCOBALAMIN [Concomitant]
     Active Substance: METHYLCOBALAMIN
     Dosage: 0.5 MILLIGRAM, ^ONCE^
     Route: 049
     Dates: start: 20230801, end: 20230803
  24. GLYCERIN [Concomitant]
     Active Substance: GLYCERIN
     Indication: Constipation
     Dosage: 40-80 MILLIGRAM, BID
     Route: 050
     Dates: start: 20230722, end: 20230804
  25. ONDANSETRON HYDROCHLORIDE [Concomitant]
     Active Substance: ONDANSETRON HYDROCHLORIDE
     Indication: Product used for unknown indication
     Dosage: 8 MILLIGRAM
     Route: 049
     Dates: start: 20230723, end: 20230723
  26. OXYCODONE HYDROCHLORIDE [Concomitant]
     Active Substance: OXYCODONE HYDROCHLORIDE
     Indication: Product used for unknown indication
     Dosage: 10 MILLIGRAM, ^ONCE^
     Route: 049
     Dates: start: 20230723, end: 20230805
  27. POTASSIUM CITRATE [Concomitant]
     Active Substance: POTASSIUM CITRATE
     Indication: Prophylaxis
     Dosage: 4 GRAM
     Route: 049
     Dates: start: 20230723, end: 20230723
  28. TORSEMIDE [Concomitant]
     Active Substance: TORSEMIDE
     Indication: Prophylaxis
     Dosage: 10 MILLIGRAM AND 5 MILLIGRAM, QD
     Route: 042
     Dates: start: 20230723, end: 20230723
  29. TORSEMIDE [Concomitant]
     Active Substance: TORSEMIDE
     Indication: Acute kidney injury
  30. SODIUM CHLORIDE [Concomitant]
     Active Substance: SODIUM CHLORIDE
     Indication: Prophylaxis
     Dosage: 10 MILLIGRAM, ^ONCE^
     Route: 042
     Dates: start: 20230724, end: 20230803
  31. CALAMINE [Concomitant]
     Active Substance: CALAMINE\FERRIC OXIDE RED\ZINC OXIDE
     Indication: Dermatitis allergic
     Dosage: 100 MILLILITER, BID
     Route: 058
     Dates: start: 20230726, end: 20230728
  32. CETIRIZINE HYDROCHLORIDE [Concomitant]
     Active Substance: CETIRIZINE HYDROCHLORIDE
     Indication: Dermatitis allergic
     Dosage: 10 MILLIGRAM, QD
     Route: 049
     Dates: start: 20230726, end: 20230727
  33. DEXTROSE\SODIUM CHLORIDE [Concomitant]
     Active Substance: DEXTROSE\SODIUM CHLORIDE
     Indication: Product used for unknown indication
     Dosage: 500 MILLILITER, ^ONCE^
     Route: 042
     Dates: start: 20230728, end: 20230806
  34. GRANISETRON HYDROCHLORIDE [Concomitant]
     Active Substance: GRANISETRON HYDROCHLORIDE
     Indication: Prophylaxis
     Dosage: 3 MILLIGRAM, QD
     Route: 042
     Dates: start: 20230719, end: 20230808
  35. SODIUM CHLORIDE [Concomitant]
     Active Substance: SODIUM CHLORIDE
     Indication: Electrolyte imbalance
     Dosage: 30 MILLILITRE AND 10 MILLIGRAM , ^ONCE^
     Route: 042
     Dates: start: 20230724, end: 20230803
  36. DEZOCINE [Concomitant]
     Active Substance: DEZOCINE
     Dosage: 5-10 MILLIGRAM
     Dates: start: 20230805, end: 20230811

REACTIONS (4)
  - Acute kidney injury [Fatal]
  - Gastrointestinal haemorrhage [Recovered/Resolved]
  - Enterocolitis infectious [Not Recovered/Not Resolved]
  - Bacteraemia [Recovered/Resolved]

NARRATIVE: CASE EVENT DATE: 20230805
